FAERS Safety Report 9350181 (Version 2)
Quarter: 2013Q2

REPORT INFORMATION
  Report Type: Spontaneous
  Country: KR (occurrence: KR)
  Receive Date: 20130617
  Receipt Date: 20130621
  Transmission Date: 20140414
  Serious: Yes (Death, Other)
  Sender: FDA-Public Use
  Company Number: KR-009507513-1306KOR004468

PATIENT
  Age: 64 Year
  Sex: Female

DRUGS (5)
  1. MK-0000 (001) [Suspect]
     Dosage: UNK
  2. SIMVALORD [Interacting]
     Indication: DYSLIPIDAEMIA
     Dosage: 20 MG A DAY
  3. SIROLIMUS [Interacting]
     Indication: IMMUNOSUPPRESSION
     Dosage: 2 MG/DAY
  4. GEMCITABINE [Concomitant]
     Indication: CHEMOTHERAPY
     Dosage: 1250 MG/M2, Q3W
  5. CISPLATIN [Concomitant]
     Indication: CHEMOTHERAPY
     Dosage: 75 MG/M2, Q3W

REACTIONS (2)
  - Renal failure acute [Fatal]
  - Rhabdomyolysis [Fatal]
